FAERS Safety Report 4696282-1 (Version None)
Quarter: 2005Q2

REPORT INFORMATION
  Report Type: 
  Country: None (occurrence: None)
  Receive Date: 20050620
  Receipt Date: 20050607
  Transmission Date: 20051028
  Serious: Yes (Death)
  Sender: FDA-Public Use
  Company Number: 2005S1000120

PATIENT
  Age: 50 Year
  Sex: Female

DRUGS (39)
  1. CUBICIN [Suspect]
     Indication: BACTERAEMIA
     Dosage: 180 MG; Q24H; IV
     Route: 042
     Dates: start: 20041005, end: 20041012
  2. CUBICIN [Suspect]
     Indication: ENTEROCOCCAL INFECTION
     Dosage: 180 MG; Q24H; IV
     Route: 042
     Dates: start: 20041005, end: 20041012
  3. CUBICIN [Suspect]
     Indication: PATHOGEN RESISTANCE
     Dosage: 180 MG; Q24H; IV
     Route: 042
     Dates: start: 20041005, end: 20041012
  4. CUBICIN [Suspect]
     Indication: STAPHYLOCOCCAL BACTERAEMIA
     Dosage: 180 MG; Q24H; IV
     Route: 042
     Dates: start: 20041005, end: 20041012
  5. ACETAMINOPHEN [Concomitant]
  6. ACETYLCYSTEINE [Concomitant]
  7. ALBUMIN (HUMAN) [Concomitant]
  8. ACTIVASE [Concomitant]
  9. TOTAL PARENTERAL NUTRITION (TPN) [Concomitant]
  10. .... [Concomitant]
  11. ASCORBIC ACID [Concomitant]
  12. BISACODYL [Concomitant]
  13. CEFEPIME [Concomitant]
  14. DIPHENHYDRAMINE [Concomitant]
  15. DOCUSATE [Concomitant]
  16. ERYTHROMYCIN [Concomitant]
  17. FLUCONAZOLE [Concomitant]
  18. HEPARIN [Concomitant]
  19. INSULIN [Concomitant]
  20. NPH INSULIN [Concomitant]
  21. POTASSIUM CHLORIDE [Concomitant]
  22. LACTULOSE [Concomitant]
  23. LINEZOLID [Concomitant]
  24. LORAZEPAM [Concomitant]
  25. MAGNESIUM SULFATE [Concomitant]
  26. MORPHINE [Concomitant]
  27. MULTI-VITAMIN [Concomitant]
  28. NOREPINEPHRINE [Concomitant]
  29. PANTOPRAZOLE [Concomitant]
  30. POTASSIUM PHOSPHATES [Concomitant]
  31. SENNA [Concomitant]
  32. SODIUM PHOSPHATE [Concomitant]
  33. SORBITOL [Concomitant]
  34. TEMAZEPAM [Concomitant]
  35. VANCOMYCIN [Concomitant]
  36. ZINC SULFATE [Concomitant]
  37. ZOSYN [Concomitant]
  38. AMPICILLIN [Concomitant]
  39. GENTAMICIN [Concomitant]

REACTIONS (10)
  - ANGIOPATHY [None]
  - DISEASE RECURRENCE [None]
  - HAEMOPTYSIS [None]
  - HYPERAEMIA [None]
  - INTERNATIONAL NORMALISED RATIO INCREASED [None]
  - PLATELET COUNT DECREASED [None]
  - PROTHROMBIN TIME PROLONGED [None]
  - PULMONARY EMBOLISM [None]
  - PULMONARY HAEMORRHAGE [None]
  - SURGICAL PROCEDURE REPEATED [None]
